FAERS Safety Report 17906804 (Version 2)
Quarter: 2024Q1

REPORT INFORMATION
  Report Type: Spontaneous
  Country: US (occurrence: US)
  Receive Date: 20200617
  Receipt Date: 20240123
  Transmission Date: 20240409
  Serious: Yes (Other)
  Sender: FDA-Public Use
  Company Number: US-PFIZER INC-2020234089

PATIENT
  Age: 52 Year
  Sex: Female

DRUGS (2)
  1. XELJANZ XR [Suspect]
     Active Substance: TOFACITINIB CITRATE
     Dosage: 11 MG
  2. XELJANZ XR [Suspect]
     Active Substance: TOFACITINIB CITRATE

REACTIONS (2)
  - Colitis ulcerative [Unknown]
  - Fibromyalgia [Unknown]
